FAERS Safety Report 9208653 (Version 1)
Quarter: 2013Q2

REPORT INFORMATION
  Report Type: Spontaneous
  Country: US (occurrence: None)
  Receive Date: 20130402
  Receipt Date: 20130402
  Transmission Date: 20140414
  Serious: Yes (Other)
  Sender: FDA-Public Use
  Company Number: None

PATIENT
  Age: 66 Year
  Sex: Female
  Weight: 81.65 kg

DRUGS (1)
  1. Z-PACK-ZITHROM [Suspect]
     Dosage: 250 MG 2-1ST DAY, 1 TAB 2,3,4 DAY
     Dates: start: 20130221, end: 20130225

REACTIONS (3)
  - Blister [None]
  - Urticaria [None]
  - Diarrhoea [None]
